FAERS Safety Report 5526283-2 (Version None)
Quarter: 2007Q4

REPORT INFORMATION
  Report Type: 
  Country: None (occurrence: None)
  Receive Date: 20071121
  Receipt Date: 20071121
  Transmission Date: 20080405
  Serious: Yes (Hospitalization)
  Sender: FDA-Public Use
  Company Number: None

PATIENT
  Sex: Male
  Weight: 79.2 kg

DRUGS (7)
  1. CYCLOPHOSPHAMIDE [Suspect]
     Dosage: 3200 MG
     Dates: end: 20071029
  2. DOXORUBICIN HYDROCHLORIDE [Suspect]
     Dosage: 80 MG
     Dates: end: 20071029
  3. LEUCOVORIN CALCIUM [Suspect]
     Dosage: 240 MG
     Dates: end: 20071030
  4. METHOTREXATE [Suspect]
     Dosage: 480 MG
     Dates: end: 20071028
  5. PREDNISONE TAB [Suspect]
     Dosage: 800 MG
     Dates: end: 20071102
  6. RITUXIMAB (MOAB C2B8 ANTI CD20, CHIMERIC) [Suspect]
     Dosage: 600 MG
     Dates: end: 20071027
  7. VINCRISTINE SULFATE [Suspect]
     Dosage: 2 MG
     Dates: end: 20071029

REACTIONS (2)
  - PLEURAL EFFUSION [None]
  - PULMONARY EMBOLISM [None]
